FAERS Safety Report 10670842 (Version 1)
Quarter: 2014Q4

REPORT INFORMATION
  Report Type: Spontaneous
  Country: None (occurrence: None)
  Receive Date: 20141219
  Receipt Date: 20141219
  Transmission Date: 20150529
  Serious: Yes (Other)
  Sender: FDA-Public Use
  Company Number: 2014SCAL000254

PATIENT
  Age: 79 Year
  Sex: Male

DRUGS (2)
  1. DONEPEZIL HYDROCHLORIDE (DONEPEZIL HYDROCHLORIDE) UNKNOWN [Suspect]
     Active Substance: DONEPEZIL HYDROCHLORIDE
     Indication: DEMENTIA ALZHEIMER^S TYPE
     Dosage: UNKNOWN
     Dates: start: 201206
  2. FLUOXETINE HYDROCHLORIDE (FLUOXETINE HYDROCHLORIDE) [Suspect]
     Active Substance: FLUOXETINE HYDROCHLORIDE
     Indication: DEPRESSION

REACTIONS (4)
  - Lethargy [None]
  - Decreased appetite [None]
  - Hepatotoxicity [None]
  - Drug interaction [None]
